FAERS Safety Report 9985740 (Version 1)
Quarter: 2014Q1

REPORT INFORMATION
  Report Type: Report from Study
  Country: US (occurrence: US)
  Receive Date: 20140307
  Receipt Date: 20140307
  Transmission Date: 20141002
  Serious: No
  Sender: FDA-Public Use
  Company Number: US-ABBVIE-13P-163-1086066-00

PATIENT
  Age: 53 Year
  Sex: Male

DRUGS (9)
  1. HUMIRA [Suspect]
     Indication: COLITIS ULCERATIVE
     Dosage: LOADING DOSE
     Dates: start: 20130429
  2. COLAZAL [Concomitant]
     Indication: COLITIS ULCERATIVE
  3. 6-MP [Concomitant]
     Indication: COLITIS ULCERATIVE
     Dosage: 50MG PER DAY
  4. PREDNISONE [Concomitant]
     Indication: COLITIS ULCERATIVE
     Dosage: 20MG FROM A TAPERING DOSE
  5. INSULIN [Concomitant]
     Indication: DIABETES MELLITUS
  6. GLUMETZA [Concomitant]
     Indication: DIABETES MELLITUS
  7. SERTRALINE [Concomitant]
     Indication: DEPRESSION
     Dosage: PATIENT SEES A THERAPIST FOR THIS MEDICATION
  8. LAMICTAL [Concomitant]
     Indication: DEPRESSION
     Dosage: PATIENT SEES A THERAPIST FOR THIS MEDICATION
  9. SIMVASTATIN [Concomitant]
     Indication: BLOOD CHOLESTEROL

REACTIONS (4)
  - Mood altered [Recovered/Resolved]
  - Aggression [Recovered/Resolved]
  - Distractibility [Recovered/Resolved]
  - Restlessness [Recovered/Resolved]
